FAERS Safety Report 5523802-7 (Version None)
Quarter: 2007Q4

REPORT INFORMATION
  Report Type: 
  Country: None (occurrence: None)
  Receive Date: 20071119
  Receipt Date: 20071105
  Transmission Date: 20080405
  Serious: Yes (Life-Threatening)
  Sender: FDA-Public Use
  Company Number: 2007P1000686

PATIENT
  Age: 18 Year
  Sex: Female

DRUGS (6)
  1. BUSULFAN (BUSULFAN) [Suspect]
     Indication: STEM CELL TRANSPLANT
     Dosage: 20 ML; QD; IV
     Route: 042
     Dates: start: 20070405, end: 20070408
  2. PHENYTOIN [Concomitant]
  3. CYCLOPHOSPHAMIDE [Concomitant]
  4. NEUPOGEN [Concomitant]
  5. METHOTREXATE [Concomitant]
  6. TACROLIMUS [Concomitant]

REACTIONS (7)
  - ANOREXIA [None]
  - MALAISE [None]
  - NAUSEA [None]
  - NYSTAGMUS [None]
  - STAPHYLOCOCCAL SEPSIS [None]
  - VERTIGO [None]
  - VOMITING [None]
